FAERS Safety Report 12432483 (Version 1)
Quarter: 2016Q2

REPORT INFORMATION
  Report Type: Spontaneous
  Country: US (occurrence: None)
  Receive Date: 20160602
  Receipt Date: 20160602
  Transmission Date: 20160815
  Serious: Yes (Other)
  Sender: FDA-Public Use
  Company Number: None

PATIENT
  Age: 26 Year
  Sex: Male

DRUGS (1)
  1. SUBOXONE [Suspect]
     Active Substance: BUPRENORPHINE HYDROCHLORIDE\NALOXONE HYDROCHLORIDE
     Indication: DRUG DEPENDENCE
     Dosage: 8 MG FILM
     Dates: start: 20110615

REACTIONS (6)
  - Pain in jaw [None]
  - Swollen tongue [None]
  - Oral pain [None]
  - Drug screen positive [None]
  - Lip swelling [None]
  - Headache [None]

NARRATIVE: CASE EVENT DATE: 20110615
